FAERS Safety Report 20471815 (Version 1)
Quarter: 2022Q1

REPORT INFORMATION
  Report Type: Spontaneous
  Country: FR (occurrence: FR)
  Receive Date: 20220214
  Receipt Date: 20220214
  Transmission Date: 20220424
  Serious: Yes (Other)
  Sender: FDA-Public Use
  Company Number: FR-BAUSCH-BL-2022-002442

PATIENT
  Age: 90 Year
  Sex: Female

DRUGS (3)
  1. CARTEOLOL [Suspect]
     Active Substance: CARTEOLOL
     Indication: Glaucoma
     Dosage: FOR 5 YEARS (1 DROP IN THE MORNING IN BOTH EYES)
     Route: 047
  2. LATANOPROST [Concomitant]
     Active Substance: LATANOPROST
     Indication: Product used for unknown indication
     Route: 047
  3. NPLATE [Concomitant]
     Active Substance: ROMIPLOSTIM
     Indication: Thrombocytopenia
     Dosage: 1 INJECTION PER WEEK STARTED AROUND FOR 13 YEARS

REACTIONS (11)
  - Hallucination, visual [Unknown]
  - Dysphonia [Unknown]
  - Vertigo [Unknown]
  - Myalgia [Unknown]
  - Vision blurred [Not Recovered/Not Resolved]
  - Nausea [Recovered/Resolved]
  - Depression [Unknown]
  - Fatigue [Unknown]
  - Insomnia [Unknown]
  - Nightmare [Unknown]
  - Dizziness [Unknown]
